FAERS Safety Report 5971461-1 (Version None)
Quarter: 2008Q4

REPORT INFORMATION
  Report Type: 
  Country: None (occurrence: None)
  Receive Date: 20081201
  Receipt Date: 20081125
  Transmission Date: 20090506
  Serious: Yes (Hospitalization)
  Sender: FDA-Public Use
  Company Number: JP-BRISTOL-MYERS SQUIBB COMPANY-14381966

PATIENT
  Age: 78 Year
  Sex: Male

DRUGS (12)
  1. TAXOL [Suspect]
     Indication: LUNG ADENOCARCINOMA
     Route: 041
     Dates: start: 20060626
  2. PARAPLATIN [Suspect]
     Indication: LUNG ADENOCARCINOMA
     Dosage: LAST DOSE: 21-AUG-2006, THERAPY DURATION: 3 DAYS
     Route: 041
     Dates: start: 20060626, end: 20060626
  3. CISPLATIN [Suspect]
     Indication: LUNG ADENOCARCINOMA
     Route: 041
     Dates: start: 20060522, end: 20060522
  4. TAXOTERE [Suspect]
     Indication: LUNG ADENOCARCINOMA
     Route: 041
     Dates: start: 20060522, end: 20060522
  5. RADIOTHERAPY [Concomitant]
     Indication: LUNG ADENOCARCINOMA
     Dosage: 69.2GRAY/32 FRACTIONS
  6. ZOFRAN [Concomitant]
     Route: 042
     Dates: start: 20060522, end: 20060602
  7. KYTRIL [Concomitant]
     Route: 042
     Dates: start: 20060626, end: 20060821
  8. DECADRON [Concomitant]
     Route: 042
     Dates: start: 20060522, end: 20060821
  9. NEUTROGIN [Concomitant]
     Route: 058
     Dates: start: 20060529, end: 20060531
  10. HARNAL [Concomitant]
     Route: 048
     Dates: start: 20030101, end: 20080904
  11. EVIPROSTAT [Concomitant]
     Route: 048
     Dates: start: 20030101, end: 20060526
  12. UNIPHYL [Concomitant]
     Route: 048
     Dates: start: 20060428, end: 20060602

REACTIONS (4)
  - ANOREXIA [None]
  - DIARRHOEA [None]
  - INTERSTITIAL LUNG DISEASE [None]
  - RADIATION PNEUMONITIS [None]
